FAERS Safety Report 17192531 (Version 2)
Quarter: 2019Q4

REPORT INFORMATION
  Report Type: Spontaneous
  Country: JP (occurrence: JP)
  Receive Date: 20191223
  Receipt Date: 20191230
  Transmission Date: 20200122
  Serious: Yes (Hospitalization)
  Sender: FDA-Public Use
  Company Number: JP-009507513-1912JPN002809J

PATIENT
  Age: 69 Year

DRUGS (1)
  1. KEYTRUDA [Suspect]
     Active Substance: PEMBROLIZUMAB
     Indication: TRANSITIONAL CELL CARCINOMA
     Dosage: 200 MILLIGRAM, Q3W
     Route: 041
     Dates: start: 20191003, end: 20191114

REACTIONS (3)
  - Pyrexia [Recovered/Resolved]
  - Pain in extremity [Unknown]
  - Malaise [Unknown]

NARRATIVE: CASE EVENT DATE: 2019
